FAERS Safety Report 21343405 (Version 1)
Quarter: 2022Q3

REPORT INFORMATION
  Report Type: Spontaneous
  Country: RU (occurrence: RU)
  Receive Date: 20220916
  Receipt Date: 20220916
  Transmission Date: 20221026
  Serious: Yes (Other)
  Sender: FDA-Public Use
  Company Number: RU-SA-2022SA382686

PATIENT
  Age: 50 Year
  Sex: Female
  Weight: 72 kg

DRUGS (2)
  1. TAXOTERE [Suspect]
     Active Substance: DOCETAXEL
     Indication: Targeted cancer therapy
     Dosage: 180 MG
     Route: 041
     Dates: start: 20220816
  2. GEMCITARE [Concomitant]
     Indication: Targeted cancer therapy
     Dosage: UNK
     Dates: start: 20220809, end: 20220816

REACTIONS (1)
  - Skin toxicity [Not Recovered/Not Resolved]

NARRATIVE: CASE EVENT DATE: 20220816
